FAERS Safety Report 4688379-7 (Version None)
Quarter: 2005Q2

REPORT INFORMATION
  Report Type: 
  Country: None (occurrence: None)
  Receive Date: 20050609
  Receipt Date: 20050602
  Transmission Date: 20051028
  Serious: Yes (Hospitalization, Other)
  Sender: FDA-Public Use
  Company Number: 2005061521

PATIENT
  Age: 59 Year
  Sex: Male

DRUGS (13)
  1. LIPITOR [Suspect]
     Indication: HYPERLIPIDAEMIA
     Dosage: 10 MG (1 IN 1 D),ORAL
     Route: 048
     Dates: start: 20020713, end: 20050408
  2. ASPIRIN [Concomitant]
  3. TAKEPRON (LANSOPRAZOLE) [Concomitant]
  4. CARVEDILOL [Concomitant]
  5. SIGMART (NICORANDIL) [Concomitant]
  6. SELBEX (TEPRENONE) [Concomitant]
  7. ISOSORBIDE DINITRATE [Concomitant]
  8. TICLOPIDINE HCL [Concomitant]
  9. TAMBOCOR [Concomitant]
  10. ADALAT [Concomitant]
  11. MEROPEN (MEROPENEM) [Concomitant]
  12. AMIKACIN [Concomitant]
  13. IMMUNE GLOBULIN INTRAVENOUS (HUMAN) [Concomitant]

REACTIONS (13)
  - ARTHRALGIA [None]
  - ARTHRITIS [None]
  - AUTOANTIBODY POSITIVE [None]
  - CHEST PAIN [None]
  - COLLAGEN DISORDER [None]
  - COMPUTERISED TOMOGRAM ABNORMAL [None]
  - DEPRESSED LEVEL OF CONSCIOUSNESS [None]
  - MUSCULOSKELETAL STIFFNESS [None]
  - MYALGIA [None]
  - PANCYTOPENIA [None]
  - PLEURAL EFFUSION [None]
  - PLEURISY [None]
  - RED BLOOD CELL SEDIMENTATION RATE INCREASED [None]
